FAERS Safety Report 5576457-X (Version None)
Quarter: 2007Q4

REPORT INFORMATION
  Report Type: 
  Country: None (occurrence: None)
  Receive Date: 20071228
  Receipt Date: 20071219
  Transmission Date: 20080405
  Serious: Yes (Life-Threatening)
  Sender: FDA-Public Use
  Company Number: JP-ASTRAZENECA-2007SE06399

PATIENT
  Age: 30872 Day
  Sex: Female

DRUGS (3)
  1. BLOPRESS [Suspect]
     Indication: HYPERTENSION
     Route: 048
     Dates: end: 20071127
  2. AMLODIN OD [Suspect]
     Route: 048
     Dates: end: 20071127
  3. NOVOLIN R [Concomitant]
     Route: 042

REACTIONS (2)
  - HYPERKALAEMIA [None]
  - SICK SINUS SYNDROME [None]
